FAERS Safety Report 5924376-9 (Version None)
Quarter: 2008Q4

REPORT INFORMATION
  Report Type: 
  Country: None (occurrence: None)
  Receive Date: 20081020
  Receipt Date: 20081014
  Transmission Date: 20090506
  Serious: Yes (Other)
  Sender: FDA-Public Use
  Company Number: US-ELI_LILLY_AND_COMPANY-US200810003969

PATIENT
  Sex: Female
  Weight: 104.31 kg

DRUGS (7)
  1. BYETTA [Suspect]
     Indication: TYPE 2 DIABETES MELLITUS
     Dosage: 5 UG, 2/D
     Route: 058
     Dates: start: 20060201, end: 20060301
  2. BYETTA [Suspect]
     Dosage: 10 UG, 2/D
     Route: 058
     Dates: start: 20060301, end: 20080624
  3. BYETTA [Suspect]
     Dosage: 10 UG, 2/D
     Route: 058
     Dates: start: 20080823
  4. LEVEMIR [Concomitant]
     Indication: TYPE 2 DIABETES MELLITUS
     Dates: start: 20080601, end: 20080823
  5. HUMALOG [Concomitant]
     Indication: TYPE 2 DIABETES MELLITUS
     Dates: start: 20080601
  6. SYMLIN [Concomitant]
     Indication: TYPE 2 DIABETES MELLITUS
     Dosage: 60 UG, UNK
     Dates: start: 20080624, end: 20080626
  7. SYMLIN [Concomitant]
     Dosage: 120 UG, 2/D
     Dates: start: 20080627, end: 20080823

REACTIONS (5)
  - FEELING ABNORMAL [None]
  - HUNGER [None]
  - HYPOAESTHESIA ORAL [None]
  - INGROWING NAIL [None]
  - VAGINAL HAEMORRHAGE [None]
